FAERS Safety Report 8077386-2 (Version None)
Quarter: 2012Q1

REPORT INFORMATION
  Report Type: 
  Country: None (occurrence: None)
  Receive Date: 20120127
  Receipt Date: 20120123
  Transmission Date: 20120608
  Serious: Yes (Other)
  Sender: FDA-Public Use
  Company Number: PHEH2012US001979

PATIENT

DRUGS (1)
  1. ZOMETA [Suspect]

REACTIONS (1)
  - FRACTURE [None]
